FAERS Safety Report 7184598-9 (Version None)
Quarter: 2010Q4

REPORT INFORMATION
  Report Type: 
  Country: None (occurrence: None)
  Receive Date: 20101222
  Receipt Date: 20101216
  Transmission Date: 20110411
  Serious: Yes (Other)
  Sender: FDA-Public Use
  Company Number: MY-PFIZER INC-2010176619

PATIENT
  Age: 48 Year
  Sex: Male

DRUGS (1)
  1. ATARAX [Suspect]

REACTIONS (1)
  - ANGIOEDEMA [None]
